FAERS Safety Report 20554907 (Version 1)
Quarter: 2022Q1

REPORT INFORMATION
  Report Type: Spontaneous
  Country: NL (occurrence: NL)
  Receive Date: 20220304
  Receipt Date: 20220304
  Transmission Date: 20220423
  Serious: Yes (Other)
  Sender: FDA-Public Use
  Company Number: None

PATIENT
  Sex: Male
  Weight: 16 kg

DRUGS (4)
  1. FUROSEMIDE [Suspect]
     Active Substance: FUROSEMIDE
     Indication: Fluid retention
     Dosage: 5 MILLIGRAM, BID (5MG 2X DAILY)
  2. ENTOCORT [Suspect]
     Active Substance: BUDESONIDE
     Indication: Protein-losing gastroenteropathy
     Dosage: 3 MILLIGRAM, BID (2X DAILY 1 PIECE)
     Dates: start: 20210212
  3. ASPIRIN [Concomitant]
     Active Substance: ASPIRIN
     Dosage: 80 MILLIGRAM (TABLET)
  4. KEPPRA [Concomitant]
     Active Substance: LEVETIRACETAM
     Dosage: DRINK, 100 MG/ML (MILLIGRAM PER MILLILITER)
     Route: 048

REACTIONS (1)
  - Epilepsy [Recovered/Resolved]
